FAERS Safety Report 8759299 (Version 1)
Quarter: 2012Q4

REPORT INFORMATION
  Report Type: 
  Country: US (occurrence: US)
  Receive Date: 20120829
  Receipt Date: 20120829
  Transmission Date: 20130627
  Serious: Yes (Hospitalization, Other)
  Sender: FDA-Public Use
  Company Number: US-B.I. PHARMACEUTICALS,INC./RIDGEFIELD-2012-BP-20172GE

PATIENT
  Age: 45 Year
  Sex: Male

DRUGS (12)
  1. ALTEPLASE [Suspect]
     Indication: MYOCARDIAL INFARCTION
     Dosage: 10 mg
  2. ALTEPLASE [Suspect]
  3. ASPIRIN (ASPIRIN) [Concomitant]
     Dosage: 325 mg
  4. HEPARIN (HEPARIN SODIUM) [Concomitant]
     Dosage: 5000 U
  5. HEPARIN (HEPARIN SODIUM) [Concomitant]
     Dosage: 1000 U
  6. LOPRESSOR (METOPROLOL TARTRATE) [Concomitant]
     Dosage: 5 mg
     Route: 042
  7. LOPRESSOR (METOPROLOL TARTRATE) [Concomitant]
     Dosage: 50 mg
     Route: 048
  8. ATIVAN (LORAZEPAM) [Concomitant]
     Dosage: 1 mg
     Route: 042
  9. MOPRHINE SULFATE (MORPHINE SULFATE) [Concomitant]
     Route: 042
  10. NITRO DRIP (NITROGLYCERIN) [Concomitant]
     Dosage: 10 mcg
  11. NITRO DRIP (NITROGLYCERIN) [Concomitant]
     Dosage: 40 mcg
  12. PROCARDIA (NIFEDIPINE) [Concomitant]
     Route: 060

REACTIONS (2)
  - Blood pressure increased [Not Recovered/Not Resolved]
  - Tachycardia [Not Recovered/Not Resolved]
